FAERS Safety Report 6694818-2 (Version None)
Quarter: 2010Q2

REPORT INFORMATION
  Report Type: 
  Country: None (occurrence: None)
  Receive Date: 20100423
  Receipt Date: 20100414
  Transmission Date: 20101027
  Serious: Yes (Hospitalization)
  Sender: FDA-Public Use
  Company Number: CA-JNJFOC-20100404608

PATIENT
  Sex: Male
  Weight: 109 kg

DRUGS (3)
  1. REMICADE [Suspect]
     Indication: PSORIATIC ARTHROPATHY
     Route: 042
  2. REMICADE [Suspect]
     Dosage: 3 INFUSIONS
     Route: 042
  3. REMICADE [Suspect]
     Route: 042

REACTIONS (3)
  - HAEMORRHAGE [None]
  - KIDNEY INFECTION [None]
  - NEPHROLITHIASIS [None]
